FAERS Safety Report 8204413-1 (Version None)
Quarter: 2012Q1

REPORT INFORMATION
  Report Type: 
  Country: None (occurrence: None)
  Receive Date: 20120313
  Receipt Date: 20120313
  Transmission Date: 20120608
  Serious: Yes (Other)
  Sender: FDA-Public Use
  Company Number: None

PATIENT
  Age: 56 Year
  Sex: Male

DRUGS (2)
  1. METHADONE HCL [Suspect]
     Route: 048
  2. ALPRAZOLAM [Concomitant]

REACTIONS (7)
  - DYSARTHRIA [None]
  - TOXICOLOGIC TEST ABNORMAL [None]
  - LETHARGY [None]
  - MULTIPLE DRUG OVERDOSE [None]
  - RESPIRATORY DEPRESSION [None]
  - ELECTROCARDIOGRAM QT PROLONGED [None]
  - MENTAL STATUS CHANGES [None]
